FAERS Safety Report 26144317 (Version 1)
Quarter: 2025Q4

REPORT INFORMATION
  Report Type: Spontaneous
  Country: EU (occurrence: EU)
  Receive Date: 20251211
  Receipt Date: 20251211
  Transmission Date: 20260117
  Serious: Yes (Other)
  Sender: AUROBINDO
  Company Number: EU-AFSSAPS-DJ2025001873

PATIENT
  Age: 60 Year
  Sex: Female
  Weight: 64 kg

DRUGS (4)
  1. OLANZAPINE [Suspect]
     Active Substance: OLANZAPINE
     Indication: Prophylaxis of nausea and vomiting
     Dosage: 1 DOSAGE FORM, ONCE A DAY
     Dates: start: 20251017, end: 20251021
  2. ONDANSETRON [Suspect]
     Active Substance: ONDANSETRON
     Indication: Prophylaxis of nausea and vomiting
     Dosage: 1 DOSAGE FORM, ONCE A DAY (2ND CYCLE)
     Dates: start: 20251017, end: 20251021
  3. TEMODAL [Suspect]
     Active Substance: TEMOZOLOMIDE
     Indication: Glioblastoma
     Dosage: 150 MILLIGRAM/SQ. METER, ONCE A DAY (2ND CYCLE)
     Dates: start: 20251017, end: 20251021
  4. AVASTIN [Concomitant]
     Active Substance: BEVACIZUMAB
     Indication: Glioblastoma
     Dosage: 10 MILLIGRAM/SQ. METER, CYCLICAL

REACTIONS (1)
  - Hepatocellular injury [Recovering/Resolving]

NARRATIVE: CASE EVENT DATE: 20251030
